FAERS Safety Report 15578357 (Version 1)
Quarter: 2018Q4

REPORT INFORMATION
  Report Type: Spontaneous
  Country: US (occurrence: US)
  Receive Date: 20181101
  Receipt Date: 20181101
  Transmission Date: 20190205
  Serious: Yes (Death)
  Sender: FDA-Public Use
  Company Number: None

PATIENT
  Age: 79 Year
  Sex: Male
  Weight: 117 kg

DRUGS (1)
  1. CEFTRIAXONE 1 GM [Suspect]
     Active Substance: CEFTRIAXONE
     Indication: SEPSIS
     Route: 040
     Dates: start: 20181025

REACTIONS (2)
  - Restlessness [None]
  - Cardiac arrest [None]

NARRATIVE: CASE EVENT DATE: 20181025
